FAERS Safety Report 4835890-1 (Version None)
Quarter: 2005Q4

REPORT INFORMATION
  Report Type: 
  Country: None (occurrence: None)
  Receive Date: 20051118
  Receipt Date: 20051107
  Transmission Date: 20060501
  Serious: Yes (Death)
  Sender: FDA-Public Use
  Company Number: 2005S1000244

PATIENT
  Age: 78 Year
  Sex: Male
  Weight: 70 kg

DRUGS (6)
  1. CUBICIN [Suspect]
     Indication: ENDOCARDITIS ENTEROCOCCAL
     Dosage: 6 MG/KG;Q48; UNKNOWN
     Dates: start: 20050101, end: 20051101
  2. CEFTRIAXONE [Concomitant]
  3. LEVOFLOXACIN [Concomitant]
  4. MOXIFLOXACIN [Concomitant]
  5. LASIX [Concomitant]
  6. ACETYLSALICYLIC ACID [Concomitant]

REACTIONS (7)
  - ANEURYSM RUPTURED [None]
  - BLOOD CREATININE INCREASED [None]
  - CEREBRAL HAEMORRHAGE [None]
  - HYPERTENSION [None]
  - INTERNATIONAL NORMALISED RATIO INCREASED [None]
  - MYCOTIC ANEURYSM [None]
  - PROTHROMBIN TIME PROLONGED [None]
